FAERS Safety Report 24110664 (Version 1)
Quarter: 2024Q3

REPORT INFORMATION
  Report Type: Spontaneous
  Country: TW (occurrence: TW)
  Receive Date: 20240718
  Receipt Date: 20240718
  Transmission Date: 20241017
  Serious: Yes (Other)
  Sender: DAIICHI
  Company Number: TW-DSJP-DSJ-2024-135272

PATIENT
  Age: 79 Year
  Sex: Male
  Weight: 67 kg

DRUGS (7)
  1. EDOXABAN [Suspect]
     Active Substance: EDOXABAN
     Indication: Prophylaxis
     Dosage: 60 MG, QD
     Route: 065
     Dates: start: 2024, end: 2024
  2. EDOXABAN [Suspect]
     Active Substance: EDOXABAN
     Indication: Atrial fibrillation
     Dosage: 30 MG, QD
     Route: 065
     Dates: start: 2024
  3. HARKIN [Concomitant]
     Indication: Product used for unknown indication
     Dosage: UNK, BID (TOTAL DOSE 56)
  4. ARICEPT [Concomitant]
     Active Substance: DONEPEZIL HYDROCHLORIDE
     Indication: Product used for unknown indication
     Dosage: 0.5 QN (TOTAL DOSE 15)
  5. CEREGENT [Concomitant]
     Indication: Product used for unknown indication
     Dosage: UNK UNK1 PACK, BID (TOTAL DOSE 60)
     Route: 048
  6. AMLODIPINE BESYLATE\OLMESARTAN MEDOXOMIL [Concomitant]
     Active Substance: AMLODIPINE BESYLATE\OLMESARTAN MEDOXOMIL
     Indication: Product used for unknown indication
     Dosage: 1 DF, QD (TOTAL DOSE 30MG)
  7. TAMSULOSIN HYDROCHLORIDE [Concomitant]
     Active Substance: TAMSULOSIN HYDROCHLORIDE
     Indication: Product used for unknown indication
     Dosage: 1 DF, QD (TOTAL DOSE 30) (ROA: AC)
     Route: 050

REACTIONS (1)
  - Renal impairment [Recovered/Resolved]

NARRATIVE: CASE EVENT DATE: 20240311
